FAERS Safety Report 13468697 (Version 1)
Quarter: 2017Q2

REPORT INFORMATION
  Report Type: Spontaneous
  Country: PR (occurrence: US)
  Receive Date: 20170421
  Receipt Date: 20170421
  Transmission Date: 20170830
  Serious: No
  Sender: FDA-Public Use
  Company Number: PR-INCYTE CORPORATION-2017IN002833

PATIENT
  Sex: Female

DRUGS (1)
  1. JAKAFI [Suspect]
     Active Substance: RUXOLITINIB
     Indication: POLYCYTHAEMIA VERA
     Dosage: 10 MG, QD
     Route: 048
     Dates: start: 20161024

REACTIONS (4)
  - Gait disturbance [Unknown]
  - Hypotension [Unknown]
  - Dizziness [Unknown]
  - Confusional state [Unknown]
